FAERS Safety Report 18266975 (Version 1)
Quarter: 2020Q3

REPORT INFORMATION
  Report Type: Spontaneous
  Country: GB (occurrence: GB)
  Receive Date: 20200915
  Receipt Date: 20200915
  Transmission Date: 20201103
  Serious: Yes (Other)
  Sender: FDA-Public Use
  Company Number: GB-ACCORD-200692

PATIENT
  Age: 65 Year
  Sex: Female
  Weight: 68.94 kg

DRUGS (2)
  1. ESOMEPRAZOLE/ESOMEPRAZOLE MAGNESIUM/ESOMEPRAZOLE SODIUM [Suspect]
     Active Substance: ESOMEPRAZOLE
     Indication: GASTROOESOPHAGEAL REFLUX DISEASE
     Dosage: INITIALLY REDUCING THE DOSE TO 20 MG ONE A DAY, THEN INCREASED BACK TO 20 MG TWICE A DAY
     Route: 048
     Dates: start: 2019
  2. HYPERICUM PERFORATUM/HYPERICUM PERFORATUM DRY EXTRA/HYPERICUM PERFORATUM EXTRACT/HYPERICUM PERFORATU [Concomitant]

REACTIONS (4)
  - Depression [Unknown]
  - Anxiety [Unknown]
  - Suicidal ideation [Unknown]
  - Affective disorder [Unknown]

NARRATIVE: CASE EVENT DATE: 20200804
